FAERS Safety Report 25299792 (Version 1)
Quarter: 2025Q2

REPORT INFORMATION
  Report Type: Spontaneous
  Country: FR (occurrence: FR)
  Receive Date: 20250512
  Receipt Date: 20250512
  Transmission Date: 20250716
  Serious: Yes (Hospitalization)
  Sender: MYLAN
  Company Number: None

PATIENT
  Age: 55 Year
  Sex: Male
  Weight: 102 kg

DRUGS (24)
  1. TRAMADOL [Suspect]
     Active Substance: TRAMADOL
     Indication: Product used for unknown indication
     Dates: start: 20250325, end: 20250325
  2. TRAMADOL [Suspect]
     Active Substance: TRAMADOL
     Route: 048
     Dates: start: 20250325, end: 20250325
  3. TRAMADOL [Suspect]
     Active Substance: TRAMADOL
     Route: 048
     Dates: start: 20250325, end: 20250325
  4. TRAMADOL [Suspect]
     Active Substance: TRAMADOL
     Dates: start: 20250325, end: 20250325
  5. PERINDOPRIL [Suspect]
     Active Substance: PERINDOPRIL
     Indication: Product used for unknown indication
     Dosage: 25 MILLIGRAM, QD
     Dates: start: 20250325, end: 20250325
  6. PERINDOPRIL [Suspect]
     Active Substance: PERINDOPRIL
     Dosage: 25 MILLIGRAM, QD
     Route: 048
     Dates: start: 20250325, end: 20250325
  7. PERINDOPRIL [Suspect]
     Active Substance: PERINDOPRIL
     Dosage: 25 MILLIGRAM, QD
     Route: 048
     Dates: start: 20250325, end: 20250325
  8. PERINDOPRIL [Suspect]
     Active Substance: PERINDOPRIL
     Dosage: 25 MILLIGRAM, QD
     Dates: start: 20250325, end: 20250325
  9. ACETAMINOPHEN [Suspect]
     Active Substance: ACETAMINOPHEN
     Indication: Product used for unknown indication
     Dosage: 5 GRAM, QD
     Dates: start: 20250325, end: 20250325
  10. ACETAMINOPHEN [Suspect]
     Active Substance: ACETAMINOPHEN
     Dosage: 5 GRAM, QD
     Route: 048
     Dates: start: 20250325, end: 20250325
  11. ACETAMINOPHEN [Suspect]
     Active Substance: ACETAMINOPHEN
     Dosage: 5 GRAM, QD
     Route: 048
     Dates: start: 20250325, end: 20250325
  12. ACETAMINOPHEN [Suspect]
     Active Substance: ACETAMINOPHEN
     Dosage: 5 GRAM, QD
     Dates: start: 20250325, end: 20250325
  13. PREGABALIN [Suspect]
     Active Substance: PREGABALIN
     Indication: Product used for unknown indication
     Dates: start: 20250325, end: 20250325
  14. PREGABALIN [Suspect]
     Active Substance: PREGABALIN
     Route: 048
     Dates: start: 20250325, end: 20250325
  15. PREGABALIN [Suspect]
     Active Substance: PREGABALIN
     Route: 048
     Dates: start: 20250325, end: 20250325
  16. PREGABALIN [Suspect]
     Active Substance: PREGABALIN
     Dates: start: 20250325, end: 20250325
  17. MIANSERIN HYDROCHLORIDE [Suspect]
     Active Substance: MIANSERIN HYDROCHLORIDE
     Indication: Product used for unknown indication
     Dosage: 300 MILLIGRAM, QD
     Dates: start: 20250325, end: 20250325
  18. MIANSERIN HYDROCHLORIDE [Suspect]
     Active Substance: MIANSERIN HYDROCHLORIDE
     Dosage: 300 MILLIGRAM, QD
     Route: 048
     Dates: start: 20250325, end: 20250325
  19. MIANSERIN HYDROCHLORIDE [Suspect]
     Active Substance: MIANSERIN HYDROCHLORIDE
     Dosage: 300 MILLIGRAM, QD
     Route: 048
     Dates: start: 20250325, end: 20250325
  20. MIANSERIN HYDROCHLORIDE [Suspect]
     Active Substance: MIANSERIN HYDROCHLORIDE
     Dosage: 300 MILLIGRAM, QD
     Dates: start: 20250325, end: 20250325
  21. DIAZEPAM [Suspect]
     Active Substance: DIAZEPAM
     Indication: Product used for unknown indication
     Dosage: 25 MILLIGRAM, QD
     Dates: start: 20250325, end: 20250325
  22. DIAZEPAM [Suspect]
     Active Substance: DIAZEPAM
     Dosage: 25 MILLIGRAM, QD
     Route: 048
     Dates: start: 20250325, end: 20250325
  23. DIAZEPAM [Suspect]
     Active Substance: DIAZEPAM
     Dosage: 25 MILLIGRAM, QD
     Route: 048
     Dates: start: 20250325, end: 20250325
  24. DIAZEPAM [Suspect]
     Active Substance: DIAZEPAM
     Dosage: 25 MILLIGRAM, QD
     Dates: start: 20250325, end: 20250325

REACTIONS (3)
  - Altered state of consciousness [Recovered/Resolved]
  - Poisoning deliberate [Recovered/Resolved]
  - Intentional overdose [Unknown]

NARRATIVE: CASE EVENT DATE: 20250325
